FAERS Safety Report 11781072 (Version 3)
Quarter: 2016Q1

REPORT INFORMATION
  Report Type: Spontaneous
  Country: JP (occurrence: JP)
  Receive Date: 20151126
  Receipt Date: 20160118
  Transmission Date: 20160525
  Serious: Yes (Hospitalization, Other)
  Sender: FDA-Public Use
  Company Number: JP-ASTRAZENECA-2015SF18812

PATIENT
  Age: 10 Year
  Sex: Male
  Weight: 36 kg

DRUGS (32)
  1. SEROQUEL [Suspect]
     Active Substance: QUETIAPINE FUMARATE
     Indication: SCHIZOPHRENIA
     Route: 048
     Dates: end: 20150327
  2. RISPERIDONE. [Suspect]
     Active Substance: RISPERIDONE
     Indication: AGITATION
     Route: 048
     Dates: end: 20150403
  3. VALSARTAN. [Concomitant]
     Active Substance: VALSARTAN
     Dosage: 40 MG
  4. NELBON [Concomitant]
     Active Substance: NITRAZEPAM
     Dosage: 1%
  5. SEPAMIT-R [Concomitant]
     Active Substance: NIFEDIPINE
     Dosage: 2%
  6. LAMICTAL [Concomitant]
     Active Substance: LAMOTRIGINE
     Dosage: 5 MG
  7. SEROQUEL [Suspect]
     Active Substance: QUETIAPINE FUMARATE
     Indication: SCHIZOPHRENIA
     Route: 048
     Dates: start: 20150328, end: 20150403
  8. SEROQUEL [Suspect]
     Active Substance: QUETIAPINE FUMARATE
     Indication: SELF INJURIOUS BEHAVIOUR
     Route: 048
     Dates: start: 20150328, end: 20150403
  9. RISPERIDONE. [Suspect]
     Active Substance: RISPERIDONE
     Indication: SELF INJURIOUS BEHAVIOUR
     Route: 048
     Dates: start: 201504, end: 20150407
  10. RISPERIDONE. [Suspect]
     Active Substance: RISPERIDONE
     Indication: AGITATION
     Route: 048
     Dates: start: 201504, end: 20150407
  11. LAMICTAL [Concomitant]
     Active Substance: LAMOTRIGINE
     Dosage: 25 MG
  12. SEROQUEL [Suspect]
     Active Substance: QUETIAPINE FUMARATE
     Indication: SELF INJURIOUS BEHAVIOUR
     Route: 048
     Dates: end: 20150327
  13. SEROQUEL [Suspect]
     Active Substance: QUETIAPINE FUMARATE
     Indication: AGITATION
     Route: 048
     Dates: start: 20150328, end: 20150403
  14. SEROQUEL [Suspect]
     Active Substance: QUETIAPINE FUMARATE
     Indication: INJURY
     Route: 048
     Dates: start: 20150406, end: 20150407
  15. ABILIFY [Suspect]
     Active Substance: ARIPIPRAZOLE
     Indication: SCHIZOPHRENIA
     Route: 048
     Dates: start: 20150509, end: 20150515
  16. SEROQUEL [Suspect]
     Active Substance: QUETIAPINE FUMARATE
     Indication: INJURY
     Route: 048
     Dates: start: 20150328, end: 20150403
  17. RISPERIDONE. [Suspect]
     Active Substance: RISPERIDONE
     Indication: INJURY
     Route: 048
     Dates: start: 201504, end: 20150407
  18. OXYGEN. [Concomitant]
     Active Substance: OXYGEN
     Dates: start: 20150403
  19. CEFTRIAXONE. [Concomitant]
     Active Substance: CEFTRIAXONE
     Dates: start: 20150403
  20. RISPERIDONE. [Suspect]
     Active Substance: RISPERIDONE
     Indication: INJURY
     Route: 048
     Dates: end: 20150403
  21. TRICLORYL [Concomitant]
     Active Substance: TRICLOFOS SODIUM
     Dosage: 10 %
  22. SEROQUEL [Suspect]
     Active Substance: QUETIAPINE FUMARATE
     Indication: INJURY
     Route: 048
     Dates: end: 20150327
  23. SEROQUEL [Suspect]
     Active Substance: QUETIAPINE FUMARATE
     Indication: SELF INJURIOUS BEHAVIOUR
     Route: 048
     Dates: start: 20150406, end: 20150407
  24. SEROQUEL [Suspect]
     Active Substance: QUETIAPINE FUMARATE
     Indication: AGITATION
     Route: 048
     Dates: start: 20150406, end: 20150407
  25. ABILIFY [Suspect]
     Active Substance: ARIPIPRAZOLE
     Indication: SCHIZOPHRENIA
     Route: 048
     Dates: start: 20150516, end: 20150520
  26. DEPAKENE [Concomitant]
     Active Substance: VALPROIC ACID
     Dosage: 200 MG
  27. SEROQUEL [Suspect]
     Active Substance: QUETIAPINE FUMARATE
     Indication: AGITATION
     Route: 048
     Dates: end: 20150327
  28. SEROQUEL [Suspect]
     Active Substance: QUETIAPINE FUMARATE
     Indication: SCHIZOPHRENIA
     Route: 048
     Dates: start: 20150406, end: 20150407
  29. RISPERIDONE. [Suspect]
     Active Substance: RISPERIDONE
     Indication: SCHIZOPHRENIA
     Route: 048
     Dates: end: 20150403
  30. RISPERIDONE. [Suspect]
     Active Substance: RISPERIDONE
     Indication: SELF INJURIOUS BEHAVIOUR
     Route: 048
     Dates: end: 20150403
  31. RISPERIDONE. [Suspect]
     Active Substance: RISPERIDONE
     Indication: SCHIZOPHRENIA
     Route: 048
     Dates: start: 201504, end: 20150407
  32. SABRIL [Concomitant]
     Active Substance: VIGABATRIN

REACTIONS (3)
  - Neuroleptic malignant syndrome [Unknown]
  - Blood creatine phosphokinase increased [Recovered/Resolved]
  - Extrapyramidal disorder [Recovering/Resolving]

NARRATIVE: CASE EVENT DATE: 20150403
